FAERS Safety Report 6604426-7 (Version None)
Quarter: 2010Q1

REPORT INFORMATION
  Report Type: 
  Country: None (occurrence: None)
  Receive Date: 20100226
  Receipt Date: 20090930
  Transmission Date: 20100710
  Serious: No
  Sender: FDA-Public Use
  Company Number: A0809769A

PATIENT
  Age: 51 Year
  Sex: Female

DRUGS (9)
  1. LAMOTRIGINE [Suspect]
     Indication: PARTIAL SEIZURES
     Dosage: 100MG TWICE PER DAY
     Route: 048
     Dates: start: 20081102, end: 20081215
  2. SYNTHROID [Concomitant]
  3. LISINOPRIL [Concomitant]
  4. HYDROCHLOROTHIAZIDE [Concomitant]
  5. ZOLOFT [Concomitant]
  6. HYDROCODONE [Concomitant]
  7. AMBIEN [Concomitant]
  8. ALPRAZOLAM [Concomitant]
  9. M.V.I. [Concomitant]

REACTIONS (1)
  - DRUG INEFFECTIVE [None]
